FAERS Safety Report 7754139-3 (Version None)
Quarter: 2011Q3

REPORT INFORMATION
  Report Type: 
  Country: None (occurrence: None)
  Receive Date: 20110913
  Receipt Date: 20110830
  Transmission Date: 20111222
  Serious: Yes (Other)
  Sender: FDA-Public Use
  Company Number: 2011MA012732

PATIENT
  Age: 78 Year
  Sex: Female

DRUGS (2)
  1. CITALOPRAM [Concomitant]
  2. TRAMADOL HYDROCHLORIDE [Suspect]
     Indication: PAIN

REACTIONS (9)
  - FALL [None]
  - MYOCLONUS [None]
  - HYPERREFLEXIA [None]
  - EXTENSOR PLANTAR RESPONSE [None]
  - GENERAL PHYSICAL HEALTH DETERIORATION [None]
  - TACHYCARDIA [None]
  - HYPERTONIA [None]
  - SEROTONIN SYNDROME [None]
  - CONFUSIONAL STATE [None]
